FAERS Safety Report 25415967 (Version 1)
Quarter: 2025Q2

REPORT INFORMATION
  Report Type: Spontaneous
  Country: SK (occurrence: SK)
  Receive Date: 20250610
  Receipt Date: 20250610
  Transmission Date: 20250717
  Serious: Yes (Death, Hospitalization)
  Sender: CHEPLAPHARM
  Company Number: SK-EMA-DD-20250526-7482707-063824

PATIENT
  Age: 61 Year
  Sex: Female

DRUGS (14)
  1. QUETIAPINE [Suspect]
     Active Substance: QUETIAPINE
     Indication: Schizoaffective disorder depressive type
  2. ARIPIPRAZOLE [Suspect]
     Active Substance: ARIPIPRAZOLE
     Indication: Schizoaffective disorder depressive type
  3. TIAPRIDE [Suspect]
     Active Substance: TIAPRIDE
     Indication: Schizoaffective disorder depressive type
  4. DIAZEPAM [Suspect]
     Active Substance: DIAZEPAM
     Indication: Schizoaffective disorder depressive type
  5. ESCITALOPRAM [Suspect]
     Active Substance: ESCITALOPRAM OXALATE
     Indication: Schizoaffective disorder depressive type
  6. METRONIDAZOLE [Concomitant]
     Active Substance: METRONIDAZOLE
     Indication: Respiratory disorder prophylaxis
  7. MEROPENEM [Concomitant]
     Active Substance: MEROPENEM
     Indication: Pneumonia klebsiella
  8. HEPARIN [Concomitant]
     Active Substance: HEPARIN SODIUM
     Indication: Thrombosis prophylaxis
  9. FOSFOMYCIN [Concomitant]
     Active Substance: FOSFOMYCIN
     Indication: Pneumonia klebsiella
  10. CEFOTAXIME [Concomitant]
     Active Substance: CEFOTAXIME SODIUM
     Indication: Respiratory disorder prophylaxis
  11. ITOPRIDE [Concomitant]
     Active Substance: ITOPRIDE
  12. LACTULOSE [Concomitant]
     Active Substance: LACTULOSE
     Indication: Laxative supportive care
  13. METOCLOPRAMIDE [Concomitant]
     Active Substance: METOCLOPRAMIDE
     Indication: Laxative supportive care
  14. Disodium picosulfate [Concomitant]

REACTIONS (18)
  - Abnormal faeces [Fatal]
  - Abdominal distension [Fatal]
  - Rectal haemorrhage [Fatal]
  - Intestinal dilatation [Fatal]
  - Tissue infiltration [Fatal]
  - Mucosal ulceration [Fatal]
  - Constipation [Fatal]
  - Large intestine perforation [Fatal]
  - Faecaloma [Fatal]
  - Rectal ulcer [Fatal]
  - Peritonitis [Fatal]
  - Urinary tract infection [Recovered/Resolved]
  - Psychomotor retardation [Unknown]
  - Lethargy [Unknown]
  - Altered state of consciousness [Unknown]
  - Hypotension [Unknown]
  - C-reactive protein increased [Unknown]
  - Off label use [Unknown]
